FAERS Safety Report 4977423-5 (Version None)
Quarter: 2006Q2

REPORT INFORMATION
  Report Type: 
  Country: None (occurrence: None)
  Receive Date: 20060413
  Receipt Date: 20060328
  Transmission Date: 20061013
  Serious: Yes (Life-Threatening)
  Sender: FDA-Public Use
  Company Number: S05-PRT-05743-01

PATIENT
  Age: 36 Year
  Sex: Male

DRUGS (5)
  1. CIPRALEX (ESCITALOPRAM) [Suspect]
     Dates: start: 20051213, end: 20051217
  2. METHADONE [Suspect]
     Dosage: 40 MG QD PO
     Route: 048
  3. MIRTAZAPINE [Concomitant]
  4. OXAZEPAM [Concomitant]
  5. TRIAZOLAM [Concomitant]

REACTIONS (15)
  - ALVEOLITIS [None]
  - DEPRESSED LEVEL OF CONSCIOUSNESS [None]
  - DIZZINESS [None]
  - DRUG ABUSER [None]
  - DRUG INTERACTION [None]
  - HEADACHE [None]
  - HERPES SIMPLEX [None]
  - HYPOTENSION [None]
  - LOSS OF CONSCIOUSNESS [None]
  - MALAISE [None]
  - RESPIRATORY ACIDOSIS [None]
  - RESPIRATORY ARREST [None]
  - RESPIRATORY DISTRESS [None]
  - SOMNOLENCE [None]
  - TACHYCARDIA [None]
